FAERS Safety Report 8808748 (Version 1)
Quarter: 2012Q4

REPORT INFORMATION
  Report Type: 
  Country: MY (occurrence: MY)
  Receive Date: 20120926
  Receipt Date: 20120926
  Transmission Date: 20130627
  Serious: Yes (Other)
  Sender: FDA-Public Use
  Company Number: MY-RANBAXY-2012R3-60097

PATIENT
  Age: 55 Year
  Sex: Male

DRUGS (1)
  1. AMLODIPINE [Suspect]
     Indication: HYPERTENSION
     Dosage: 10 mg daily
     Route: 048

REACTIONS (4)
  - Oedema peripheral [Not Recovered/Not Resolved]
  - Malaise [Not Recovered/Not Resolved]
  - Face oedema [Not Recovered/Not Resolved]
  - Hyperhidrosis [Not Recovered/Not Resolved]
